FAERS Safety Report 25280182 (Version 1)
Quarter: 2025Q2

REPORT INFORMATION
  Report Type: Spontaneous
  Country: US (occurrence: None)
  Receive Date: 20250507
  Receipt Date: 20250507
  Transmission Date: 20250717
  Serious: No
  Sender: INCYTE
  Company Number: US-INCYTE CORPORATION-2025IN004566

PATIENT

DRUGS (1)
  1. JAKAFI [Suspect]
     Active Substance: RUXOLITINIB
     Indication: Neutropenia
     Dosage: 5 MILLIGRAM, BID

REACTIONS (5)
  - Mental disorder [Unknown]
  - General physical health deterioration [Unknown]
  - Dermatitis acneiform [Recovered/Resolved]
  - Nasal ulcer [Recovered/Resolved]
  - Off label use [Unknown]
